FAERS Safety Report 8167729-3 (Version None)
Quarter: 2012Q1

REPORT INFORMATION
  Report Type: 
  Country: None (occurrence: None)
  Receive Date: 20120227
  Receipt Date: 20120220
  Transmission Date: 20120608
  Serious: Yes (Death, Hospitalization)
  Sender: FDA-Public Use
  Company Number: KR-ROCHE-1036367

PATIENT
  Sex: Male
  Weight: 55 kg

DRUGS (6)
  1. VORICONAZOLE [Suspect]
     Indication: PRODUCT USED FOR UNKNOWN INDICATION
  2. XELODA [Suspect]
     Indication: GASTRIC CANCER
     Dosage: DATE OF MOST RECENT DOSE PRIOR TO SAE: 31/JAN/2012
     Route: 048
     Dates: start: 20111221
  3. AMPHOTERICIN B [Suspect]
     Indication: PRODUCT USED FOR UNKNOWN INDICATION
  4. PERTUZUMAB [Suspect]
     Indication: GASTRIC CANCER
     Dosage: DATE OF MOST RECENT DOSE PRIOR TO SAE: 18/JAN/2012
     Route: 042
     Dates: start: 20111221
  5. HERCEPTIN [Suspect]
     Indication: GASTRIC CANCER
     Dosage: DATE OF MOST RECENT DOSE PRIOR TO SAE: 18/JAN/2012
     Dates: start: 20111221
  6. CISPLATIN [Suspect]
     Indication: GASTRIC CANCER
     Dosage: DATE OF MOST RECENT DOSE PRIOR TO SAE: 18/JAN/2012
     Route: 042
     Dates: start: 20111221

REACTIONS (3)
  - FATIGUE [None]
  - RENAL FAILURE ACUTE [None]
  - PNEUMONIA FUNGAL [None]
